FAERS Safety Report 26176328 (Version 1)
Quarter: 2025Q4

REPORT INFORMATION
  Report Type: Spontaneous
  Country: US (occurrence: None)
  Receive Date: 20251218
  Receipt Date: 20251218
  Transmission Date: 20260117
  Serious: Yes (Hospitalization)
  Sender: FDA-CTU
  Company Number: None

PATIENT
  Age: 69 Year
  Sex: Male

DRUGS (10)
  1. TACROLIMUS [Suspect]
     Active Substance: TACROLIMUS
     Indication: Lung transplant
     Dosage: 2 MG TWICE A DAY ORAL
     Route: 048
     Dates: start: 20251203
  2. MYCOPHENOLIC ACID [Suspect]
     Active Substance: MYCOPHENOLIC ACID
     Indication: Lung transplant
     Dosage: FREQUENCY : TWICE A DAY;
     Route: 048
     Dates: start: 20251203
  3. Felodipine 2.5mg ER tablets [Concomitant]
  4. FLUCONAZOLE [Concomitant]
     Active Substance: FLUCONAZOLE
  5. Metoprolol ER 360mg [Concomitant]
  6. PREDNISONE [Concomitant]
     Active Substance: PREDNISONE
  7. PREDNISONE [Concomitant]
     Active Substance: PREDNISONE
  8. Senna 8.6mg [Concomitant]
  9. Tab-a-vite with iron [Concomitant]
  10. Novolog Flexpen injection [Concomitant]

REACTIONS (1)
  - Pneumonitis [None]

NARRATIVE: CASE EVENT DATE: 20251208
